FAERS Safety Report 15098679 (Version 1)
Quarter: 2018Q3

REPORT INFORMATION
  Report Type: Report from Study
  Country: FR (occurrence: FR)
  Receive Date: 20180702
  Receipt Date: 20180702
  Transmission Date: 20181010
  Serious: Yes (Other)
  Sender: FDA-Public Use
  Company Number: FR-GILEAD-2012-0065780

PATIENT
  Age: 25 Year
  Sex: Female

DRUGS (16)
  1. EMTRICITABINE/TENOFOVIR DISOPROXIL FUMARATE [Suspect]
     Active Substance: EMTRICITABINE\TENOFOVIR DISOPROXIL FUMARATE
     Indication: PERSISTENT GENERALISED LYMPHADENOPATHY
     Dosage: 1 DF, UNK
     Route: 048
     Dates: start: 20100713, end: 20111108
  2. RALTEGRAVIR. [Suspect]
     Active Substance: RALTEGRAVIR
     Indication: PERSISTENT GENERALISED LYMPHADENOPATHY
     Dosage: 800 MG, QD
     Route: 048
     Dates: start: 20100713, end: 20111108
  3. EMTRICITABINE/TENOFOVIR DISOPROXIL FUMARATE [Suspect]
     Active Substance: EMTRICITABINE\TENOFOVIR DISOPROXIL FUMARATE
     Indication: HIV INFECTION
     Dosage: 200/245, QD
     Route: 048
     Dates: start: 20120524
  4. EPZICOM [Suspect]
     Active Substance: ABACAVIR SULFATE\LAMIVUDINE
     Indication: HIV INFECTION
     Dosage: 1 DF, QD
     Route: 048
     Dates: start: 20120220, end: 20120319
  5. SELZENTRY [Suspect]
     Active Substance: MARAVIROC
     Indication: HIV INFECTION
     Dosage: 300 MG, QD
     Route: 048
     Dates: start: 20100713, end: 20111108
  6. SELZENTRY [Suspect]
     Active Substance: MARAVIROC
     Indication: PERSISTENT GENERALISED LYMPHADENOPATHY
     Dosage: UNK
     Route: 065
  7. LAMIVUDINE AND ZIDOVUDINE [Suspect]
     Active Substance: LAMIVUDINE\ZIDOVUDINE
     Indication: PERSISTENT GENERALISED LYMPHADENOPATHY
  8. LAMIVUDINE AND ZIDOVUDINE [Suspect]
     Active Substance: LAMIVUDINE\ZIDOVUDINE
     Indication: HIV INFECTION
     Dosage: 2 DF, QD
     Route: 048
     Dates: start: 20120319, end: 20120524
  9. LOPINAVIR W/RITONAVIR [Suspect]
     Active Substance: LOPINAVIR\RITONAVIR
     Indication: HIV INFECTION
     Dosage: 2 DF, QD
     Route: 048
     Dates: start: 20120220, end: 20120524
  10. LOPINAVIR W/RITONAVIR [Suspect]
     Active Substance: LOPINAVIR\RITONAVIR
     Indication: PERSISTENT GENERALISED LYMPHADENOPATHY
     Dosage: UNK
     Route: 065
  11. DARUNAVIR [Suspect]
     Active Substance: DARUNAVIR
     Indication: HIV INFECTION
     Dosage: 800 MG, QD
     Route: 048
     Dates: start: 20100713, end: 20111108
  12. RITONAVIR. [Suspect]
     Active Substance: RITONAVIR
     Indication: HIV INFECTION
     Dosage: 100 MG, QD
     Route: 048
     Dates: start: 20100713, end: 20111108
  13. RITONAVIR. [Suspect]
     Active Substance: RITONAVIR
     Indication: PERSISTENT GENERALISED LYMPHADENOPATHY
  14. RALTEGRAVIR. [Suspect]
     Active Substance: RALTEGRAVIR
     Indication: HIV INFECTION
     Dosage: 800 MG, QD
     Route: 048
     Dates: start: 20120524
  15. EPZICOM [Suspect]
     Active Substance: ABACAVIR SULFATE\LAMIVUDINE
     Indication: PERSISTENT GENERALISED LYMPHADENOPATHY
  16. DARUNAVIR [Suspect]
     Active Substance: DARUNAVIR
     Indication: PERSISTENT GENERALISED LYMPHADENOPATHY

REACTIONS (5)
  - Cholestasis of pregnancy [Recovered/Resolved]
  - Toxoplasmosis [Unknown]
  - Premature delivery [Recovered/Resolved]
  - Caesarean section [Recovered/Resolved]
  - Maternal exposure during pregnancy [Recovered/Resolved]

NARRATIVE: CASE EVENT DATE: 20120524
